FAERS Safety Report 6770879-7 (Version None)
Quarter: 2010Q2

REPORT INFORMATION
  Report Type: 
  Country: None (occurrence: None)
  Receive Date: 20100614
  Receipt Date: 20100530
  Transmission Date: 20101027
  Serious: Yes (Other)
  Sender: FDA-Public Use
  Company Number: DSA_43239_2010

PATIENT
  Age: 60 Year
  Sex: Female

DRUGS (2)
  1. WELLBUTRIN XL (WELLBUTRIN XL - BUPROPION HYDROCHLORIDE EXTENDED RELEAC [Suspect]
     Indication: DRUG USE FOR UNKNOWN INDICATION
     Dosage: 150 MG QD ORAL
     Route: 048
  2. ZOLPIDEM [Suspect]
     Indication: SLEEP DISORDER
     Dosage: DF

REACTIONS (1)
  - HEPATIC ENZYME INCREASED [None]
